FAERS Safety Report 8401624-7 (Version None)
Quarter: 2012Q2

REPORT INFORMATION
  Report Type: 
  Country: None (occurrence: None)
  Receive Date: 20120601
  Receipt Date: 20120530
  Transmission Date: 20120825
  Serious: Yes (Life-Threatening)
  Sender: FDA-Public Use
  Company Number: PHHY2012EG046633

PATIENT
  Age: 60 Year
  Sex: Female

DRUGS (1)
  1. ZOLEDRONOC ACID [Suspect]
     Indication: OSTEOPOROSIS
     Dosage: 5 MG/ 100 ML
     Route: 042
     Dates: start: 20111201

REACTIONS (1)
  - BONE MARROW DISORDER [None]
